FAERS Safety Report 15676061 (Version 2)
Quarter: 2018Q4

REPORT INFORMATION
  Report Type: Spontaneous
  Country: US (occurrence: US)
  Receive Date: 20181130
  Receipt Date: 20181203
  Transmission Date: 20190205
  Serious: Yes (Other)
  Sender: FDA-Public Use
  Company Number: US-SAKK-2018SA322780AA

PATIENT
  Age: 72 Year
  Sex: Female

DRUGS (1)
  1. LANTUS [Suspect]
     Active Substance: INSULIN GLARGINE
     Indication: TYPE 2 DIABETES MELLITUS
     Dosage: 45 U, QD NIGHTLY
     Route: 065

REACTIONS (5)
  - Cataract operation [Unknown]
  - Incontinence [Unknown]
  - Device operational issue [Unknown]
  - Arthralgia [Unknown]
  - Movement disorder [Unknown]
